FAERS Safety Report 8958612 (Version 1)
Quarter: 2012Q4

REPORT INFORMATION
  Report Type: Spontaneous
  Country: US (occurrence: None)
  Receive Date: 20121203
  Receipt Date: 20121203
  Transmission Date: 20130627
  Serious: Yes (Other)
  Sender: FDA-Public Use
  Company Number: 1211-693

PATIENT
  Age: 69 Year
  Sex: Female
  Weight: 73.48 kg

DRUGS (3)
  1. EYLEA [Suspect]
     Indication: WET MACULAR DEGENERATION
     Dates: start: 20120731
  2. ASPIRIN (ACETYLSALICYLIC ACID) [Concomitant]
  3. ZOCOR (SIMVASTATIN) [Concomitant]

REACTIONS (2)
  - Syncope [None]
  - Heart rate increased [None]
